FAERS Safety Report 4865211-X (Version None)
Quarter: 2005Q4

REPORT INFORMATION
  Report Type: 
  Country: None (occurrence: None)
  Receive Date: 20051223
  Receipt Date: 20051208
  Transmission Date: 20060501
  Serious: Yes (Death)
  Sender: FDA-Public Use
  Company Number: JP-GLAXOSMITHKLINE-B0403417A

PATIENT
  Age: 57 Year
  Sex: Male

DRUGS (17)
  1. EPIVIR [Suspect]
     Indication: HIV INFECTION
     Route: 048
     Dates: start: 20041230, end: 20050301
  2. ZIAGEN [Suspect]
     Indication: HIV INFECTION
     Route: 048
     Dates: start: 20050219, end: 20050301
  3. ZERIT [Suspect]
     Indication: HIV INFECTION
     Route: 048
     Dates: start: 20041230, end: 20050218
  4. VIRACEPT [Concomitant]
     Indication: HIV INFECTION
     Route: 048
     Dates: start: 20041230, end: 20050301
  5. ZITHROMAC [Concomitant]
     Route: 048
     Dates: start: 20050109, end: 20050307
  6. FOSCAVIR [Concomitant]
     Indication: PNEUMONIA
     Route: 042
     Dates: start: 20050304, end: 20050307
  7. COTRIM [Concomitant]
     Route: 048
     Dates: start: 20041231, end: 20050228
  8. GRAN [Concomitant]
     Dosage: 75MCG PER DAY
     Dates: start: 20050104, end: 20050112
  9. PENTCILLIN [Concomitant]
     Dosage: 2G THREE TIMES PER DAY
     Dates: start: 20050104, end: 20050112
  10. TAZOCIN [Concomitant]
     Dosage: 2.5G THREE TIMES PER DAY
     Route: 042
     Dates: start: 20050104, end: 20050112
  11. GENTACIN [Concomitant]
     Dosage: 60MG THREE TIMES PER DAY
     Dates: start: 20050106, end: 20050112
  12. RITUXAN [Concomitant]
     Dosage: 640MG PER DAY
     Route: 042
     Dates: start: 20050115
  13. ONCOVIN [Concomitant]
     Dosage: 2MG PER DAY
     Route: 042
     Dates: start: 20050117
  14. ENDOXAN [Concomitant]
     Dosage: 1276MG PER DAY
     Dates: start: 20050117
  15. DOXORUBICIN HCL [Concomitant]
     Dosage: 85MG PER DAY
     Dates: start: 20050117
  16. PREDONINE [Concomitant]
     Route: 048
     Dates: start: 20050117, end: 20050121
  17. MODACIN [Concomitant]
     Dosage: 1G FOUR TIMES PER DAY
     Route: 042
     Dates: start: 20050125, end: 20050216

REACTIONS (2)
  - HYPOAESTHESIA [None]
  - PANCYTOPENIA [None]
